FAERS Safety Report 4293491-0 (Version None)
Quarter: 2004Q1

REPORT INFORMATION
  Report Type: 
  Country: None (occurrence: None)
  Receive Date: 20040126
  Receipt Date: 20031030
  Transmission Date: 20041129
  Serious: No
  Sender: FDA-Public Use
  Company Number: USA031049630

PATIENT
  Age: 87 Year
  Sex: Female

DRUGS (4)
  1. FORTEO [Suspect]
     Indication: OSTEOPOROSIS
     Dosage: 20 UG/DAY
     Dates: start: 20031003
  2. LIPITOR [Concomitant]
  3. NORVASC [Concomitant]
  4. BENICAR (BENICAR) [Concomitant]

REACTIONS (4)
  - BACK PAIN [None]
  - BODY TEMPERATURE INCREASED [None]
  - DIZZINESS [None]
  - FEELING HOT [None]
